FAERS Safety Report 7099210 (Version 3)
Quarter: 2020Q3

REPORT INFORMATION
  Report Type: Report from Study
  Country: RU (occurrence: RU)
  Receive Date: 20090828
  Receipt Date: 20100326
  Transmission Date: 20201105
  Serious: Yes (Hospitalization)
  Sender: FDA-Public Use
  Company Number: RU-WYE-H10677009

PATIENT
  Age: 59 Year
  Sex: Female
  Weight: 80 kg

DRUGS (6)
  1. INTERFERON ALFA NOS [Suspect]
     Active Substance: INTERFERON ALFA-2A OR INTERFERON ALFA-2B
     Indication: RENAL CANCER
     Dosage: 9 ^ME^ EVERY 2 DAYS
     Route: 058
     Dates: start: 20090702, end: 20090730
  2. INTERFERON ALFA NOS [Suspect]
     Active Substance: INTERFERON ALFA-2A OR INTERFERON ALFA-2B
     Dosage: 6 ^ME^ ? FREQUENCY NOT PROVIDED
     Route: 058
     Dates: start: 20090903
  3. GLIBENCLAMIDE [Suspect]
     Active Substance: GLYBURIDE
     Indication: DIABETES MELLITUS
     Dosage: NOT PROVIDED
     Route: 065
     Dates: start: 2006, end: 20090813
  4. AVASTIN [Suspect]
     Active Substance: BEVACIZUMAB
     Indication: RENAL CANCER
     Route: 042
     Dates: start: 20090702, end: 20090806
  5. BUFORMIN [Suspect]
     Active Substance: BUFORMIN
     Indication: DIABETES MELLITUS
     Dosage: UNKNOWN
     Route: 065
     Dates: start: 2006, end: 20090813
  6. AVASTIN [Suspect]
     Active Substance: BEVACIZUMAB
     Dosage: NOT PROVIDED
     Route: 042
     Dates: start: 20090903

REACTIONS (3)
  - Hepatitis toxic [Recovered/Resolved]
  - Aspartate aminotransferase increased [Not Recovered/Not Resolved]
  - Alanine aminotransferase increased [Not Recovered/Not Resolved]

NARRATIVE: CASE EVENT DATE: 20090810
